FAERS Safety Report 7894204-3 (Version None)
Quarter: 2011Q4

REPORT INFORMATION
  Report Type: 
  Country: None (occurrence: None)
  Receive Date: 20111104
  Receipt Date: 20111020
  Transmission Date: 20120403
  Serious: Yes (Other)
  Sender: FDA-Public Use
  Company Number: PHHY2011JP93699

PATIENT
  Sex: Male

DRUGS (7)
  1. SIMULECT [Suspect]
     Dosage: 20 MG, UNK
     Route: 042
     Dates: start: 20061014, end: 20061014
  2. MYCOPHENOLATE MOFETIL (CELLCEPT) [Suspect]
     Indication: RENAL TRANSPLANT
     Dosage: UNK UKN, UNK
     Route: 048
  3. SANDIMMUNE [Concomitant]
     Indication: RENAL TRANSPLANT
     Dosage: 120 MG, UNK
     Route: 042
     Dates: start: 20061010
  4. NEORAL [Suspect]
     Indication: RENAL TRANSPLANT
     Dosage: 300 MG, UNK
     Route: 048
  5. PREDNISOLONE [Concomitant]
     Indication: RENAL TRANSPLANT
     Dosage: 50 MG, UNK
     Route: 042
     Dates: start: 20061010, end: 20061010
  6. NEORAL [Suspect]
     Dosage: 400 TO 150 MG
     Route: 048
     Dates: start: 20061011
  7. SIMULECT [Suspect]
     Indication: RENAL TRANSPLANT
     Dosage: 20 MG, UNK
     Route: 042
     Dates: start: 20061010, end: 20061010

REACTIONS (7)
  - RENAL ARTERY THROMBOSIS [None]
  - BLOOD CREATININE INCREASED [None]
  - ANURIA [None]
  - BLOOD UREA INCREASED [None]
  - KIDNEY TRANSPLANT REJECTION [None]
  - CHRONIC ALLOGRAFT NEPHROPATHY [None]
  - RENAL TUBULAR NECROSIS [None]
